FAERS Safety Report 26145351 (Version 1)
Quarter: 2025Q4

REPORT INFORMATION
  Report Type: Spontaneous
  Country: RU (occurrence: RU)
  Receive Date: 20251211
  Receipt Date: 20251211
  Transmission Date: 20260118
  Serious: Yes (Other)
  Sender: AMGEN
  Company Number: RU-AMGEN-RUSSP2025242751

PATIENT

DRUGS (2)
  1. XGEVA [Suspect]
     Active Substance: DENOSUMAB
     Indication: Hyperparathyroidism primary
     Dosage: UNK
     Route: 065
  2. CINACALCET HYDROCHLORIDE [Suspect]
     Active Substance: CINACALCET HYDROCHLORIDE
     Indication: Hyperparathyroidism primary
     Dosage: UNK
     Route: 065

REACTIONS (18)
  - Spinal fracture [Unknown]
  - Cerebrovascular accident [Unknown]
  - Obstructive pancreatitis [Unknown]
  - Acute myocardial infarction [Unknown]
  - Neoplasm malignant [Unknown]
  - Purine metabolism disorder [Unknown]
  - Renal disorder [Unknown]
  - Lipid metabolism disorder [Unknown]
  - Gastrointestinal disorder [Unknown]
  - Hypertension [Unknown]
  - Gene mutation [Unknown]
  - Hyperparathyroidism primary [Unknown]
  - Adenoma benign [Unknown]
  - Hyperplasia [Unknown]
  - Coronary artery disease [Unknown]
  - Neoplasm [Unknown]
  - Fracture [Unknown]
  - Off label use [Unknown]
